FAERS Safety Report 24875496 (Version 3)
Quarter: 2025Q1

REPORT INFORMATION
  Report Type: Spontaneous
  Country: CH (occurrence: CH)
  Receive Date: 20250122
  Receipt Date: 20250211
  Transmission Date: 20250408
  Serious: Yes (Death)
  Sender: ROCHE
  Company Number: CH-ROCHE-10000182919

PATIENT
  Age: 13 Year
  Sex: Female

DRUGS (1)
  1. AVASTIN [Suspect]
     Active Substance: BEVACIZUMAB
     Indication: Glioma
     Route: 065
     Dates: start: 202403

REACTIONS (2)
  - Disease progression [Fatal]
  - Off label use [Unknown]

NARRATIVE: CASE EVENT DATE: 20240301
